FAERS Safety Report 13993424 (Version 1)
Quarter: 2017Q3

REPORT INFORMATION
  Report Type: Spontaneous
  Country: IT (occurrence: IT)
  Receive Date: 20170920
  Receipt Date: 20170920
  Transmission Date: 20171128
  Serious: Yes (Hospitalization, Other)
  Sender: FDA-Public Use
  Company Number: IT-JNJFOC-20170917599

PATIENT

DRUGS (3)
  1. SIMEPREVIR [Suspect]
     Active Substance: SIMEPREVIR
     Indication: CHRONIC HEPATITIS C
     Route: 065
  2. RIBAVIRIN. [Suspect]
     Active Substance: RIBAVIRIN
     Indication: CHRONIC HEPATITIS C
     Route: 065
  3. SOFOSBUVIR [Suspect]
     Active Substance: SOFOSBUVIR
     Indication: CHRONIC HEPATITIS C
     Route: 065

REACTIONS (16)
  - Diarrhoea [Unknown]
  - Nausea [Unknown]
  - Pruritus [Unknown]
  - Dyspepsia [Unknown]
  - Hypotension [Unknown]
  - Rash [Unknown]
  - Hyperbilirubinaemia [Unknown]
  - Hypertension [Unknown]
  - Headache [Unknown]
  - Affective disorder [Unknown]
  - Anaemia [Unknown]
  - Dizziness [Unknown]
  - Insomnia [Unknown]
  - Arrhythmia [Unknown]
  - Asthenia [Unknown]
  - Constipation [Unknown]
